FAERS Safety Report 12869878 (Version 2)
Quarter: 2017Q1

REPORT INFORMATION
  Report Type: Report from Study
  Country: US (occurrence: US)
  Receive Date: 20161020
  Receipt Date: 20170124
  Transmission Date: 20170428
  Serious: No
  Sender: FDA-Public Use
  Company Number: US-AMGEN-USASL2016121328

PATIENT
  Sex: Female

DRUGS (1)
  1. REPATHA [Suspect]
     Active Substance: EVOLOCUMAB
     Indication: BLOOD CHOLESTEROL INCREASED
     Dosage: 140 MG(2TIMES/MONTH), Q2WK
     Route: 065

REACTIONS (6)
  - Abdominal distension [Unknown]
  - Constipation [Unknown]
  - Urinary tract infection [Unknown]
  - Abdominal discomfort [Unknown]
  - Arthropathy [Unknown]
  - Asthma [Unknown]
